FAERS Safety Report 6201525-9 (Version None)
Quarter: 2009Q2

REPORT INFORMATION
  Report Type: 
  Country: None (occurrence: None)
  Receive Date: 20090526
  Receipt Date: 20090522
  Transmission Date: 20091009
  Serious: Yes (Hospitalization)
  Sender: FDA-Public Use
  Company Number: CH-BAYER-200921459GPV

PATIENT
  Age: 85 Year
  Sex: Female

DRUGS (2)
  1. ASPIRIN [Suspect]
     Indication: DRUG USE FOR UNKNOWN INDICATION
     Dosage: TOTAL DAILY DOSE: 100 MG  UNIT DOSE: 100 MG
     Route: 048
  2. ACENOCOUMAROL [Interacting]
     Indication: ATRIAL FIBRILLATION
     Dosage: TOTAL DAILY DOSE: 0.5 MG
     Route: 048
     Dates: start: 20090322

REACTIONS (4)
  - DYSPNOEA [None]
  - FALL [None]
  - HEADACHE [None]
  - SUBDURAL HAEMATOMA [None]
